FAERS Safety Report 7498978-5 (Version None)
Quarter: 2011Q2

REPORT INFORMATION
  Report Type: 
  Country: None (occurrence: None)
  Receive Date: 20110524
  Receipt Date: 20090409
  Transmission Date: 20111010
  Serious: Yes (Death, Other)
  Sender: FDA-Public Use
  Company Number: US-BAYER-200917803NA

PATIENT
  Age: 73 Year
  Sex: Male
  Weight: 84 kg

DRUGS (11)
  1. TRASYLOL [Suspect]
     Indication: CORONARY ARTERY BYPASS
     Dosage: 200CC BOLUS; 50 ML/ HOUR INFUSION
     Route: 042
     Dates: start: 20061206, end: 20061206
  2. TRASYLOL [Suspect]
     Indication: PHLEBECTOMY
  3. TRICOR [Concomitant]
     Dosage: 145 MG, UNK
     Route: 048
  4. LOPRESSOR [Concomitant]
  5. IBUPROFEN [Concomitant]
     Dosage: 800MG TAB- 1 TAB 3 TIME PER DAY
     Route: 048
     Dates: start: 20020823
  6. LEVAQUIN [Concomitant]
     Dosage: 500 MG, QD
     Route: 048
     Dates: start: 20061030
  7. TRASYLOL [Suspect]
     Indication: HIGH FREQUENCY ABLATION
  8. COUMADIN [Concomitant]
     Dosage: 2.5 MG, QD
     Route: 048
     Dates: start: 20061030
  9. ALTACE [Concomitant]
     Dosage: 2.5 MG, QD
     Route: 048
  10. LASIX [Concomitant]
     Dosage: 40 MG, QD
     Route: 048
     Dates: start: 20061030
  11. LANSOPRAZOLE [Concomitant]
     Dosage: 30 MG, QD
     Route: 048
     Dates: start: 20010301

REACTIONS (14)
  - UNEVALUABLE EVENT [None]
  - FEAR [None]
  - STRESS [None]
  - DEATH [None]
  - ENCEPHALOPATHY [None]
  - RESPIRATORY DISORDER [None]
  - RENAL FAILURE [None]
  - EMOTIONAL DISTRESS [None]
  - ANXIETY [None]
  - RENAL IMPAIRMENT [None]
  - MULTI-ORGAN FAILURE [None]
  - RENAL INJURY [None]
  - PAIN [None]
  - HAEMODYNAMIC INSTABILITY [None]
